FAERS Safety Report 9775134 (Version 1)
Quarter: 2013Q4

REPORT INFORMATION
  Report Type: Spontaneous
  Country: US (occurrence: US)
  Receive Date: 20131220
  Receipt Date: 20131220
  Transmission Date: 20140711
  Serious: Yes (Other)
  Sender: FDA-Public Use
  Company Number: US-GILEAD-2010-0027610

PATIENT
  Age: 34 Year
  Sex: Male

DRUGS (4)
  1. VISTIDE [Suspect]
     Indication: HERPES SIMPLEX
     Route: 042
  2. VISTIDE [Suspect]
     Route: 026
  3. ACYCLOVIR [Concomitant]
     Route: 042
  4. VANCOMYCIN HYDROCHLORIDE [Concomitant]

REACTIONS (1)
  - Nephropathy toxic [Unknown]
